FAERS Safety Report 22135453 (Version 1)
Quarter: 2023Q1

REPORT INFORMATION
  Report Type: Other
  Country: None (occurrence: MY)
  Receive Date: 20230324
  Receipt Date: 20230324
  Transmission Date: 20230417
  Serious: Yes (Other)
  Sender: FDA-Public Use
  Company Number: MY-B.Braun Medical Inc.-2139502

PATIENT
  Age: 48 Year
  Sex: Male

DRUGS (1)
  1. HEPARIN SODIUM IN DEXTROSE [Suspect]
     Active Substance: HEPARIN SODIUM
     Indication: Peripheral artery thrombosis
     Route: 042

REACTIONS (1)
  - Drug ineffective [Unknown]
